FAERS Safety Report 9973039 (Version 1)
Quarter: 2014Q1

REPORT INFORMATION
  Report Type: Report from Study
  Country: FR (occurrence: FR)
  Receive Date: 20140306
  Receipt Date: 20140306
  Transmission Date: 20141002
  Serious: Yes (Hospitalization)
  Sender: FDA-Public Use
  Company Number: FR-BRISTOL-MYERS SQUIBB COMPANY-20352613

PATIENT
  Age: 65 Year
  Sex: Female

DRUGS (3)
  1. CETUXIMAB [Suspect]
     Indication: SQUAMOUS CELL CARCINOMA OF HEAD AND NECK
     Dosage: MOST RECENT INFUSION : 16JAN2012
     Route: 042
     Dates: start: 20111226
  2. CARBOPLATIN [Suspect]
     Indication: SQUAMOUS CELL CARCINOMA OF HEAD AND NECK
     Dosage: MOST RECENT INFUSION : 26JAN2012?24 DAYS?4 PER CYCLE
     Route: 042
     Dates: start: 20120102
  3. FLUOROURACIL [Suspect]
     Indication: SQUAMOUS CELL CARCINOMA OF HEAD AND NECK
     Dosage: MOST RECENT INFUSION : 26JAN2012?4 PER CYCLE
     Route: 042
     Dates: start: 20120102

REACTIONS (1)
  - Febrile bone marrow aplasia [Recovered/Resolved]
